FAERS Safety Report 19833696 (Version 1)
Quarter: 2021Q3

REPORT INFORMATION
  Report Type: Spontaneous
  Country: DE (occurrence: DE)
  Receive Date: 20210915
  Receipt Date: 20210915
  Transmission Date: 20211014
  Serious: No
  Sender: FDA-Public Use
  Company Number: DE-ALKEM LABORATORIES LIMITED-DE-ALKEM-2021-04749

PATIENT
  Age: 82 Year
  Sex: Female

DRUGS (2)
  1. SOLIFENACIN [Suspect]
     Active Substance: SOLIFENACIN
     Indication: INCONTINENCE
     Dosage: 5 MILLIGRAM, QD
     Route: 065
  2. SOLIFENACIN [Suspect]
     Active Substance: SOLIFENACIN
     Dosage: 5 MILLIGRAM, QD
     Route: 065
     Dates: start: 2021

REACTIONS (6)
  - Visual acuity reduced [Unknown]
  - Maculopathy [Unknown]
  - Wrong technique in product usage process [Unknown]
  - Dyspepsia [Unknown]
  - Bronchitis chronic [Unknown]
  - Product prescribing error [Unknown]
